FAERS Safety Report 20871290 (Version 1)
Quarter: 2022Q2

REPORT INFORMATION
  Report Type: Spontaneous
  Country: US (occurrence: US)
  Receive Date: 20220525
  Receipt Date: 20220525
  Transmission Date: 20220721
  Serious: No
  Sender: FDA-Public Use
  Company Number: US-MEDICUREINC-2022USSPO00025

PATIENT
  Age: 70 Year
  Sex: Female

DRUGS (2)
  1. ZYPITAMAG [Suspect]
     Active Substance: PITAVASTATIN
     Indication: Product used for unknown indication
  2. BUPROPION HYDROCHLORIDE [Concomitant]
     Active Substance: BUPROPION HYDROCHLORIDE

REACTIONS (1)
  - Muscle spasms [Recovered/Resolved]
